FAERS Safety Report 6919226-8 (Version None)
Quarter: 2010Q3

REPORT INFORMATION
  Report Type: 
  Country: None (occurrence: None)
  Receive Date: 20100810
  Receipt Date: 20100810
  Transmission Date: 20110219
  Serious: Yes (Hospitalization)
  Sender: FDA-Public Use
  Company Number: None

PATIENT
  Sex: Female
  Weight: 78 kg

DRUGS (7)
  1. INTRON A [Suspect]
     Indication: INTRAOCULAR MELANOMA
     Dosage: 3MU 3XWEEKLY SQ
     Route: 058
     Dates: start: 20100311
  2. PEPCID [Concomitant]
  3. ACETAMINOPHEN [Concomitant]
  4. COMPAZINE [Concomitant]
  5. ASPIRIN [Concomitant]
  6. LORAZEPAM [Concomitant]
  7. ADVAIR DISKUS 100/50 [Concomitant]

REACTIONS (2)
  - HAEMOPTYSIS [None]
  - PULMONARY EMBOLISM [None]
